FAERS Safety Report 5650395-6 (Version None)
Quarter: 2008Q1

REPORT INFORMATION
  Report Type: 
  Country: None (occurrence: None)
  Receive Date: 20080305
  Receipt Date: 20080227
  Transmission Date: 20080703
  Serious: Yes (Other)
  Sender: FDA-Public Use
  Company Number: JP-BAYER-200810367BYL

PATIENT
  Age: 61 Year
  Sex: Female

DRUGS (10)
  1. BETAFERON [Suspect]
     Indication: LYMPHOMA
     Dates: start: 20050901, end: 20050901
  2. STEROID [Concomitant]
     Indication: LYMPHOMA
     Dates: start: 20050701, end: 20050701
  3. STEROID [Concomitant]
     Dates: start: 20050825, end: 20050801
  4. STEROID [Concomitant]
     Dates: start: 20050801, end: 20050801
  5. STEROID [Concomitant]
     Dates: start: 20050601, end: 20050601
  6. STEROID [Concomitant]
     Dates: start: 20051201, end: 20051201
  7. PREDONINE [Concomitant]
     Indication: LYMPHOMA
     Route: 048
     Dates: start: 20050601
  8. PREDONINE [Concomitant]
     Route: 048
     Dates: start: 20050701
  9. PREDONINE [Concomitant]
     Route: 048
     Dates: start: 20051101
  10. PREDONINE [Concomitant]
     Route: 048
     Dates: start: 20050801

REACTIONS (4)
  - ANAEMIA [None]
  - BLOOD LACTATE DEHYDROGENASE INCREASED [None]
  - DIPLEGIA [None]
  - PLATELET COUNT DECREASED [None]
